FAERS Safety Report 12551093 (Version 1)
Quarter: 2016Q3

REPORT INFORMATION
  Report Type: Spontaneous
  Country: GB (occurrence: GB)
  Receive Date: 20160713
  Receipt Date: 20160713
  Transmission Date: 20161109
  Serious: Yes (Other)
  Sender: FDA-Public Use
  Company Number: GB-ROCHE-1789847

PATIENT
  Age: 43 Year
  Sex: Female

DRUGS (6)
  1. HERCEPTIN [Concomitant]
     Active Substance: TRASTUZUMAB
     Route: 065
  2. AVASTIN [Suspect]
     Active Substance: BEVACIZUMAB
     Indication: HER-2 POSITIVE BREAST CANCER
     Route: 065
     Dates: start: 201402
  3. CARBOPLATIN. [Concomitant]
     Active Substance: CARBOPLATIN
  4. ERIBULIN [Concomitant]
     Active Substance: ERIBULIN
     Route: 065
     Dates: start: 201505
  5. TAXOL [Suspect]
     Active Substance: PACLITAXEL
     Indication: HER-2 POSITIVE BREAST CANCER
     Route: 065
     Dates: start: 201402
  6. DENOSUMAB [Suspect]
     Active Substance: DENOSUMAB
     Indication: HER-2 POSITIVE BREAST CANCER
     Dosage: INITIALLY STARTED WITH LETROZOLE?FURTHER CONTINUED WITH BEVACIZUMAB (IN FEB/2014)
     Route: 065

REACTIONS (9)
  - Metastases to liver [Unknown]
  - Metastases to lymph nodes [Unknown]
  - Metastases to bone [Unknown]
  - Pneumonitis [Unknown]
  - Lymph node pain [Unknown]
  - Lymphadenopathy [Unknown]
  - Infection [Unknown]
  - Metastases to lung [Unknown]
  - Hypoxia [Unknown]

NARRATIVE: CASE EVENT DATE: 201501
